FAERS Safety Report 7314058-3 (Version None)
Quarter: 2011Q1

REPORT INFORMATION
  Report Type: 
  Country: None (occurrence: None)
  Receive Date: 20110225
  Receipt Date: 20100420
  Transmission Date: 20110831
  Serious: No
  Sender: FDA-Public Use
  Company Number: US-MYLANLABS-2010S1006918

PATIENT
  Age: 19 Year
  Sex: Male

DRUGS (6)
  1. AMNESTEEM [Suspect]
     Indication: ACNE
     Route: 048
     Dates: start: 20090901, end: 20091022
  2. AMNESTEEM [Suspect]
     Route: 048
     Dates: start: 20100101, end: 20100201
  3. AMNESTEEM [Suspect]
     Route: 048
     Dates: start: 20091229, end: 20100101
  4. AMNESTEEM [Suspect]
     Route: 048
     Dates: start: 20091023, end: 20091228
  5. AMNESTEEM [Suspect]
     Route: 048
     Dates: start: 20100201, end: 20100401
  6. AMNESTEEM [Suspect]
     Route: 048
     Dates: start: 20100101, end: 20100201

REACTIONS (3)
  - LOW DENSITY LIPOPROTEIN INCREASED [None]
  - BLOOD CHOLESTEROL INCREASED [None]
  - BLOOD TRIGLYCERIDES INCREASED [None]
